FAERS Safety Report 20459887 (Version 2)
Quarter: 2022Q1

REPORT INFORMATION
  Report Type: Other
  Country: JP (occurrence: JP)
  Receive Date: 20220211
  Receipt Date: 20220211
  Transmission Date: 20220423
  Serious: Yes (Death, Hospitalization, Other)
  Sender: FDA-Public Use
  Company Number: JP-CHUGAI-2022003247

PATIENT
  Age: 8 Decade
  Sex: Male

DRUGS (8)
  1. HERCEPTIN [Suspect]
     Active Substance: TRASTUZUMAB
     Indication: Gastric cancer
     Dosage: 8 MILLIGRAM/KILOGRAM
     Route: 041
  2. HERCEPTIN [Suspect]
     Active Substance: TRASTUZUMAB
     Dosage: 6 MILLIGRAM/KILOGRAM, ONCE/3WEEKS
     Route: 041
  3. HERCEPTIN [Suspect]
     Active Substance: TRASTUZUMAB
     Dosage: 6 MILLIGRAM/KILOGRAM, ONCE/3WEEKS
     Route: 041
  4. XELODA [Suspect]
     Active Substance: CAPECITABINE
     Indication: Gastric cancer
     Dosage: 2000 MILLIGRAM/SQ. METER
     Route: 048
  5. CISPLATIN [Concomitant]
     Active Substance: CISPLATIN
     Indication: Gastric cancer
     Dosage: 80 MILLIGRAM/SQ. METER
     Route: 041
  6. PACLITAXEL [Concomitant]
     Active Substance: PACLITAXEL
     Indication: Gastric cancer
     Dosage: 100 MILLIGRAM/SQ. METER, ONCE/WEEK
     Route: 041
  7. PACLITAXEL [Concomitant]
     Active Substance: PACLITAXEL
     Dosage: 100 MILLIGRAM/SQ. METER, ONCE/3WEEKS
     Route: 041
  8. PACLITAXEL [Concomitant]
     Active Substance: PACLITAXEL
     Dosage: 90 MILLIGRAM/SQ. METER, ONCE/WEEK
     Route: 041

REACTIONS (5)
  - Death [Fatal]
  - Hypoglycaemic coma [Unknown]
  - Myelosuppression [Unknown]
  - Stomatitis [Unknown]
  - Decreased appetite [Unknown]
